FAERS Safety Report 13333653 (Version 1)
Quarter: 2017Q1

REPORT INFORMATION
  Report Type: Spontaneous
  Country: FR (occurrence: FR)
  Receive Date: 20170313
  Receipt Date: 20170313
  Transmission Date: 20170428
  Serious: Yes (Other)
  Sender: FDA-Public Use
  Company Number: PHHY2017FR036203

PATIENT
  Age: 71 Year
  Sex: Male

DRUGS (4)
  1. ALEPSAL (CAFFEINE\PHENOBARBITAL) [Suspect]
     Active Substance: CAFFEINE\PHENOBARBITAL
     Indication: GENERALISED TONIC-CLONIC SEIZURE
     Dosage: 50 MG, BID
     Route: 048
     Dates: start: 19760101
  2. CONDROSULF GRN [Suspect]
     Active Substance: SODIUM CHONDROITIN SULFATE
     Indication: PAIN
     Dosage: UNK
     Route: 048
     Dates: start: 20151121
  3. DIPHANTOINE [Suspect]
     Active Substance: PHENYTOIN
     Indication: GENERALISED TONIC-CLONIC SEIZURE
     Dosage: 100 MG, (1.5 DFS IN THE MORNING AND 1 DF IN THE EVENING)
     Route: 048
     Dates: start: 20140708
  4. TEGRETOL [Suspect]
     Active Substance: CARBAMAZEPINE
     Indication: GENERALISED TONIC-CLONIC SEIZURE
     Dosage: 400 MG, BID
     Route: 048
     Dates: start: 19760101

REACTIONS (2)
  - Complex regional pain syndrome [Not Recovered/Not Resolved]
  - Gait disturbance [None]

NARRATIVE: CASE EVENT DATE: 20161021
